FAERS Safety Report 17954385 (Version 1)
Quarter: 2020Q2

REPORT INFORMATION
  Report Type: Report from Study
  Country: None (occurrence: HU)
  Receive Date: 20200629
  Receipt Date: 20200629
  Transmission Date: 20200714
  Serious: Yes (Life-Threatening, Hospitalization)
  Sender: FDA-Public Use
  Company Number: HU-ABBVIE-20K-076-3462484-00

PATIENT
  Age: 69 Year
  Sex: Male

DRUGS (3)
  1. DUODOPA [Suspect]
     Active Substance: CARBIDOPA\LEVODOPA
     Dosage: MD: 6.0 ML, CONTINUOUS DOSE: 3.0 ML/HOUR; EXTRA DOSE:2.4 ML
     Route: 050
     Dates: start: 20200624
  2. DUODOPA [Suspect]
     Active Substance: CARBIDOPA\LEVODOPA
     Indication: PARKINSON^S DISEASE
     Dosage: MD: 6.0 ML, CD DURING DAY: 4.7 ML/HOUR; CONTINUOUS DOSE AT NIGHT: 1.6 ML/HOUR; ED: 2.4 ML
     Route: 050
     Dates: start: 20141107, end: 20200624
  3. MYDETON [Concomitant]
     Indication: PRODUCT USED FOR UNKNOWN INDICATION
     Dosage: 1 TABLET IN THE MORNING
     Route: 048
     Dates: start: 2010

REACTIONS (6)
  - Circulatory collapse [Recovered/Resolved]
  - Pneumonia [Unknown]
  - Clinical death [Recovered/Resolved]
  - Dyspnoea [Recovered/Resolved]
  - Urinary retention [Unknown]
  - Pyrexia [Recovering/Resolving]

NARRATIVE: CASE EVENT DATE: 202006
